FAERS Safety Report 25030443 (Version 1)
Quarter: 2025Q1

REPORT INFORMATION
  Report Type: Spontaneous
  Country: JP (occurrence: JP)
  Receive Date: 20250303
  Receipt Date: 20250303
  Transmission Date: 20250408
  Serious: Yes (Other)
  Sender: ALEXION PHARMACEUTICALS
  Company Number: JP-ASTRAZENECA-250017795_012620_P_1

PATIENT
  Age: 54 Year

DRUGS (4)
  1. TRUQAP [Suspect]
     Active Substance: CAPIVASERTIB
     Indication: Breast cancer
  2. FULVESTRANT [Suspect]
     Active Substance: FULVESTRANT
     Indication: Breast cancer
  3. FULVESTRANT [Suspect]
     Active Substance: FULVESTRANT
  4. BILASTINE [Concomitant]
     Active Substance: BILASTINE
     Indication: Prophylaxis
     Route: 065

REACTIONS (4)
  - Epilepsy [Unknown]
  - Rash [Recovered/Resolved]
  - Pyrexia [Unknown]
  - Vomiting [Unknown]
